FAERS Safety Report 21243594 (Version 1)
Quarter: 2022Q3

REPORT INFORMATION
  Report Type: Spontaneous
  Country: US (occurrence: US)
  Receive Date: 20220823
  Receipt Date: 20220823
  Transmission Date: 20221027
  Serious: No
  Sender: FDA-Public Use
  Company Number: US-ORGANON-O2208USA000982

PATIENT
  Sex: Male

DRUGS (2)
  1. PREGNYL [Suspect]
     Active Substance: CHORIOGONADOTROPIN ALFA
     Indication: Testicular failure
     Dosage: 500 UNITS IN THE MUSCLE TWICE WEEKLY
     Route: 030
  2. BACTERIOSTATIC WATER [Suspect]
     Active Substance: WATER
     Dosage: 5 MILLILITER

REACTIONS (1)
  - Product dose omission issue [Unknown]
